FAERS Safety Report 19187633 (Version 1)
Quarter: 2021Q2

REPORT INFORMATION
  Report Type: Report from Study
  Country: None (occurrence: AT)
  Receive Date: 20210428
  Receipt Date: 20210428
  Transmission Date: 20210717
  Serious: Yes (Other)
  Sender: FDA-Public Use
  Company Number: AT-ABBVIE-21K-009-3861643-00

PATIENT
  Sex: Female

DRUGS (2)
  1. DUODOPA [Suspect]
     Active Substance: CARBIDOPA\LEVODOPA
     Dosage: MD: 8.5ML, CR DAYTIME: 2.6ML/H, ED: 1ML
     Route: 050
     Dates: start: 202104
  2. DUODOPA [Suspect]
     Active Substance: CARBIDOPA\LEVODOPA
     Indication: PARKINSON^S DISEASE
     Dosage: 16H, MD: 5.5ML, CR DAYTIME: 2.3ML/H, ED: 1ML.
     Route: 050
     Dates: start: 20210407, end: 202104

REACTIONS (5)
  - Abdominal pain [Recovering/Resolving]
  - Sleep apnoea syndrome [Unknown]
  - Pneumoperitoneum [Recovering/Resolving]
  - Panic reaction [Not Recovered/Not Resolved]
  - Nocturnal dyspnoea [Not Recovered/Not Resolved]

NARRATIVE: CASE EVENT DATE: 202104
